FAERS Safety Report 10561734 (Version 2)
Quarter: 2014Q4

REPORT INFORMATION
  Report Type: Report from Study
  Country: US (occurrence: US)
  Receive Date: 20141103
  Receipt Date: 20141209
  Transmission Date: 20150529
  Serious: Yes (Hospitalization, Other)
  Sender: FDA-Public Use
  Company Number: US-GILEAD-2014-0119607

PATIENT
  Age: 55 Year
  Sex: Male

DRUGS (4)
  1. SOFOSBUVIR [Suspect]
     Active Substance: SOFOSBUVIR
     Dosage: 400 MG, UNK
     Route: 048
     Dates: start: 20141008
  2. OLYSIO [Suspect]
     Active Substance: SIMEPREVIR
     Indication: CHRONIC HEPATITIS C
     Dosage: 2 DF, BID
     Route: 048
  3. SOFOSBUVIR [Suspect]
     Active Substance: SOFOSBUVIR
     Indication: CHRONIC HEPATITIS C
     Dosage: 400 MG, BID
     Route: 048
  4. OLYSIO [Suspect]
     Active Substance: SIMEPREVIR
     Dosage: UNK
     Route: 048

REACTIONS (8)
  - Hospitalisation [Unknown]
  - Somnolence [Unknown]
  - Hypotension [Unknown]
  - Malaise [Unknown]
  - Overdose [Unknown]
  - Asthenia [Unknown]
  - Poor quality sleep [Unknown]
  - Off label use [Unknown]
